FAERS Safety Report 5825168-1 (Version None)
Quarter: 2008Q3

REPORT INFORMATION
  Report Type: 
  Country: None (occurrence: None)
  Receive Date: 20080723
  Receipt Date: 20080707
  Transmission Date: 20090109
  Serious: Yes (Other)
  Sender: FDA-Public Use
  Company Number: 8034753

PATIENT
  Age: 9 Year
  Sex: Female

DRUGS (1)
  1. LEVETIRACETAM [Suspect]
     Indication: COMPLEX PARTIAL SEIZURES
     Dosage: IV
     Route: 042

REACTIONS (4)
  - BONE MARROW FAILURE [None]
  - LETHARGY [None]
  - NEUTROPENIA [None]
  - SEPSIS [None]
